FAERS Safety Report 8390310-8 (Version None)
Quarter: 2012Q2

REPORT INFORMATION
  Report Type: 
  Country: None (occurrence: None)
  Receive Date: 20120529
  Receipt Date: 20120517
  Transmission Date: 20120825
  Serious: Yes (Hospitalization)
  Sender: FDA-Public Use
  Company Number: US-JNJFOC-20110706920

PATIENT
  Sex: Male
  Weight: 53.7 kg

DRUGS (3)
  1. PREDNISONE [Suspect]
     Indication: PROSTATE CANCER METASTATIC
     Route: 048
     Dates: start: 20110421, end: 20110522
  2. ABIRATERONE ACETATE [Suspect]
     Indication: PROSTATE CANCER METASTATIC
     Route: 048
     Dates: start: 20110421, end: 20110522
  3. ABIRATERONE ACETATE [Suspect]
     Route: 048

REACTIONS (1)
  - FATIGUE [None]
